FAERS Safety Report 15441081 (Version 1)
Quarter: 2018Q3

REPORT INFORMATION
  Report Type: Spontaneous
  Country: CA (occurrence: CA)
  Receive Date: 20180928
  Receipt Date: 20180928
  Transmission Date: 20181010
  Serious: Yes (Other)
  Sender: FDA-Public Use
  Company Number: CA-PFIZER INC-2018387848

PATIENT
  Age: 31 Year
  Sex: Male

DRUGS (19)
  1. MIDAZOLAM [Suspect]
     Active Substance: MIDAZOLAM HYDROCHLORIDE
     Indication: STATUS EPILEPTICUS
     Dosage: 40 MG/H
     Dates: start: 2016
  2. RIBAVIRIN. [Concomitant]
     Active Substance: RIBAVIRIN
     Indication: ENCEPHALITIS VIRAL
     Dosage: 25 MG/KG, UNK
     Route: 040
     Dates: start: 2016
  3. MIDAZOLAM [Suspect]
     Active Substance: MIDAZOLAM HYDROCHLORIDE
     Indication: INDUCTION OF ANAESTHESIA
     Dosage: 30 MG/H
     Dates: start: 2016
  4. PROPOFOL. [Suspect]
     Active Substance: PROPOFOL
     Indication: ANAESTHESIA
     Dosage: UNK
     Dates: start: 2016
  5. KETAMINE [Suspect]
     Active Substance: KETAMINE
     Dosage: 150 MG/H
     Dates: start: 2016
  6. PHENOBARBITAL. [Concomitant]
     Active Substance: PHENOBARBITAL
     Indication: STATUS EPILEPTICUS
     Dosage: UNK
     Dates: start: 2016
  7. VALPROATE [Concomitant]
     Active Substance: VALPROIC ACID
     Indication: STATUS EPILEPTICUS
     Dosage: UNK
     Dates: start: 2016
  8. RIBAVIRIN. [Concomitant]
     Active Substance: RIBAVIRIN
     Dosage: 6 MG/KG, EVERY 8 HOURS
     Route: 040
     Dates: start: 2016
  9. MAGNESIUM [Concomitant]
     Active Substance: MAGNESIUM
     Indication: STATUS EPILEPTICUS
     Dosage: UNK
     Dates: start: 2016
  10. KETAMINE [Suspect]
     Active Substance: KETAMINE
     Indication: STATUS EPILEPTICUS
     Dosage: 40 MG/H
     Dates: start: 2016
  11. LACOSAMIDE. [Concomitant]
     Active Substance: LACOSAMIDE
     Indication: STATUS EPILEPTICUS
     Dosage: UNK
     Dates: start: 2016
  12. KETAMINE [Suspect]
     Active Substance: KETAMINE
     Indication: INDUCTION OF ANAESTHESIA
     Dosage: 450 MG/H
     Dates: start: 2016
  13. KETAMINE [Suspect]
     Active Substance: KETAMINE
     Dosage: 500 MG/H
     Dates: start: 2016
  14. PHENYTOIN. [Concomitant]
     Active Substance: PHENYTOIN
     Indication: GENERALISED TONIC-CLONIC SEIZURE
     Dosage: UNK
     Dates: start: 2016
  15. LEVETIRACETAM. [Concomitant]
     Active Substance: LEVETIRACETAM
     Indication: GENERALISED TONIC-CLONIC SEIZURE
     Dosage: UNK
     Dates: start: 2016
  16. PENTOBARBITAL. [Suspect]
     Active Substance: PENTOBARBITAL
     Indication: STATUS EPILEPTICUS
     Dosage: 1.5 MG/KG/H
     Dates: start: 2016
  17. TOPIRAMATE. [Concomitant]
     Active Substance: TOPIRAMATE
     Indication: STATUS EPILEPTICUS
     Dosage: UNK
     Dates: start: 2016
  18. PENTOBARBITAL. [Suspect]
     Active Substance: PENTOBARBITAL
     Indication: INDUCTION OF ANAESTHESIA
  19. RIBAVIRIN. [Concomitant]
     Active Substance: RIBAVIRIN
     Dosage: 12 MG/KG, EVERY 6 HOURS
     Route: 040
     Dates: start: 2016

REACTIONS (3)
  - Status epilepticus [Recovered/Resolved]
  - Coma [Unknown]
  - Disease recurrence [Recovered/Resolved]

NARRATIVE: CASE EVENT DATE: 2016
